FAERS Safety Report 7283166-8 (Version None)
Quarter: 2011Q1

REPORT INFORMATION
  Report Type: 
  Country: None (occurrence: None)
  Receive Date: 20110204
  Receipt Date: 20110204
  Transmission Date: 20110831
  Serious: Yes (Hospitalization, Disabling)
  Sender: FDA-Public Use
  Company Number: None

PATIENT
  Sex: Female
  Weight: 87.7 kg

DRUGS (1)
  1. PREDNISONE [Suspect]
     Indication: PULMONARY FIBROSIS
     Dosage: 20MG 2 A DAY 14 DAYS  : 20MG 1 A DAY
     Dates: start: 20081217

REACTIONS (1)
  - PULMONARY FIBROSIS [None]
